FAERS Safety Report 11111800 (Version 1)
Quarter: 2015Q2

REPORT INFORMATION
  Report Type: Spontaneous
  Country: US (occurrence: None)
  Receive Date: 20150512
  Receipt Date: 20150512
  Transmission Date: 20150821
  Serious: Yes (Hospitalization, Disabling)
  Sender: FDA-Public Use
  Company Number: None

PATIENT
  Age: 37 Year
  Sex: Female
  Weight: 170.1 kg

DRUGS (2)
  1. CVS MAXIMUM STRENGTH ADULT COLD FLU + SORE THROAT [Suspect]
     Active Substance: ACETAMINOPHEN\DEXTROMETHORPHAN HYDROBROMIDE\GUAIFENESIN\PHENYLEPHRINE HYDROCHLORIDE
     Indication: RESPIRATORY TRACT CONGESTION
     Route: 048
     Dates: start: 20150504, end: 20150504
  2. CVS MAXIMUM STRENGTH ADULT COLD FLU + SORE THROAT [Suspect]
     Active Substance: ACETAMINOPHEN\DEXTROMETHORPHAN HYDROBROMIDE\GUAIFENESIN\PHENYLEPHRINE HYDROCHLORIDE
     Indication: COUGH
     Route: 048
     Dates: start: 20150504, end: 20150504

REACTIONS (2)
  - Cardiac disorder [None]
  - Hospitalisation [None]

NARRATIVE: CASE EVENT DATE: 20150504
